FAERS Safety Report 9850768 (Version 1)
Quarter: 2013Q4

REPORT INFORMATION
  Report Type: Spontaneous
  Country: US (occurrence: None)
  Receive Date: 20131226
  Receipt Date: 20131226
  Transmission Date: 20140711
  Serious: Yes (Other)
  Sender: FDA-Public Use
  Company Number: PHEH2012US017685

PATIENT
  Sex: Female

DRUGS (1)
  1. AFINITOR [Suspect]

REACTIONS (6)
  - Diabetes mellitus [None]
  - Blood pressure increased [None]
  - Confusional state [None]
  - Dizziness [None]
  - Stomatitis [None]
  - Headache [None]
